FAERS Safety Report 22013609 (Version 1)
Quarter: 2023Q1

REPORT INFORMATION
  Report Type: Spontaneous
  Country: IT (occurrence: None)
  Receive Date: 20230220
  Receipt Date: 20230220
  Transmission Date: 20230418
  Serious: Yes (Hospitalization)
  Sender: FDA-Public Use
  Company Number: None

PATIENT
  Age: 71 Year
  Sex: Male

DRUGS (2)
  1. TECENTRIQ [Suspect]
     Active Substance: ATEZOLIZUMAB
     Indication: Hepatocellular carcinoma
     Dosage: ATEZOLIZUMAB1200 MG OGNI 21 GIORNI IN ASSOCIAZIONE A BEVACIZUMAB 7,5MG/KG G1 Q21 DAL 27/10/2022 AL 2
     Route: 041
     Dates: start: 20221027, end: 20221228
  2. ALYMSYS [Concomitant]
     Active Substance: BEVACIZUMAB-MALY
     Indication: Hepatocellular carcinoma
     Dates: start: 20221027, end: 20221228

REACTIONS (1)
  - Polyradiculoneuropathy [Recovering/Resolving]

NARRATIVE: CASE EVENT DATE: 20230112
